FAERS Safety Report 4281358-3 (Version None)
Quarter: 2004Q1

REPORT INFORMATION
  Report Type: 
  Country: None (occurrence: None)
  Receive Date: 20040129
  Receipt Date: 20040123
  Transmission Date: 20041129
  Serious: Yes (Hospitalization)
  Sender: FDA-Public Use
  Company Number: DE-ROCHE-356905

PATIENT
  Age: 63 Year
  Sex: Male
  Weight: 93 kg

DRUGS (7)
  1. PEG-INTERFERON ALFA 2A (RO 25-8310) [Suspect]
     Route: 058
     Dates: start: 20030827, end: 20040121
  2. GLEEVEC [Suspect]
     Route: 048
     Dates: start: 20031008
  3. HYDROCHLOROTHIAZIDE [Suspect]
     Indication: HYPERTENSION
     Route: 048
     Dates: start: 20040105, end: 20040121
  4. RAMIPRIL [Suspect]
     Indication: HYPERTENSION
     Route: 048
     Dates: start: 20031115
  5. ZOCOR [Suspect]
     Indication: HYPERTENSION
     Route: 048
     Dates: start: 20030715
  6. METOPROLOL [Concomitant]
     Route: 048
     Dates: start: 20030615
  7. ASPIRIN [Concomitant]
     Route: 048
     Dates: start: 20030615

REACTIONS (2)
  - DYSPNOEA EXERTIONAL [None]
  - HAEMOLYSIS [None]
